FAERS Safety Report 25213790 (Version 4)
Quarter: 2025Q2

REPORT INFORMATION
  Report Type: Spontaneous
  Country: PT (occurrence: PT)
  Receive Date: 20250418
  Receipt Date: 20250526
  Transmission Date: 20250717
  Serious: Yes (Hospitalization, Other)
  Sender: Haleon PLC
  Company Number: PT-002147023-NVSC2025PT061288

PATIENT
  Age: 28 Year
  Sex: Female

DRUGS (17)
  1. DICLOFENAC [Suspect]
     Active Substance: DICLOFENAC
     Indication: Product used for unknown indication
     Route: 050
  2. DICLOFENAC [Suspect]
     Active Substance: DICLOFENAC
     Indication: Prophylaxis
  3. FOLIC ACID [Concomitant]
     Active Substance: FOLIC ACID
     Indication: Product used for unknown indication
     Route: 065
  4. METHYLPREDNISOLONE [Suspect]
     Active Substance: METHYLPREDNISOLONE
     Indication: Drug reaction with eosinophilia and systemic symptoms
     Route: 065
  5. ACETAMINOPHEN [Suspect]
     Active Substance: ACETAMINOPHEN
     Indication: Product used for unknown indication
     Route: 065
  6. ACETAMINOPHEN [Suspect]
     Active Substance: ACETAMINOPHEN
     Indication: Symptomatic treatment
  7. ACETAMINOPHEN [Suspect]
     Active Substance: ACETAMINOPHEN
     Indication: Asthenia
  8. ACETAMINOPHEN [Suspect]
     Active Substance: ACETAMINOPHEN
     Indication: Pyrexia
  9. CEFTRIAXONE [Suspect]
     Active Substance: CEFTRIAXONE
     Indication: Prophylaxis
     Route: 050
  10. CEFTRIAXONE [Suspect]
     Active Substance: CEFTRIAXONE
     Indication: Antibiotic prophylaxis
  11. IRON [Concomitant]
     Active Substance: IRON
     Indication: Product used for unknown indication
     Route: 050
  12. BETAMETHASONE [Suspect]
     Active Substance: BETAMETHASONE
     Indication: Drug reaction with eosinophilia and systemic symptoms
  13. METHYLDOPA [Suspect]
     Active Substance: METHYLDOPA
     Indication: Hypertension
     Route: 065
  14. IRON [Suspect]
     Active Substance: IRON
     Indication: Pregnancy
     Route: 050
  15. FOLIC ACID [Suspect]
     Active Substance: FOLIC ACID
     Indication: Pregnancy
     Route: 065
  16. METHYLDOPA [Concomitant]
     Active Substance: METHYLDOPA
     Indication: Product used for unknown indication
     Route: 048
  17. METHYLDOPA [Concomitant]
     Active Substance: METHYLDOPA
     Route: 050

REACTIONS (17)
  - Drug reaction with eosinophilia and systemic symptoms [Recovering/Resolving]
  - Pruritus [Unknown]
  - Exposure during pregnancy [Unknown]
  - Therapy non-responder [Unknown]
  - Asthenia [Unknown]
  - Rash maculo-papular [Recovered/Resolved]
  - Maternal exposure during breast feeding [Unknown]
  - Myalgia [Recovered/Resolved]
  - Hepatomegaly [Unknown]
  - Ascites [Unknown]
  - Colitis [Unknown]
  - Odynophagia [Recovered/Resolved]
  - Pyrexia [Unknown]
  - Cough [Recovered/Resolved]
  - Diarrhoea [Unknown]
  - Hepatitis toxic [Recovering/Resolving]
  - Live birth [Unknown]
